FAERS Safety Report 6962088-3 (Version None)
Quarter: 2010Q3

REPORT INFORMATION
  Report Type: 
  Country: None (occurrence: None)
  Receive Date: 20100902
  Receipt Date: 20100823
  Transmission Date: 20110219
  Serious: Yes (Hospitalization)
  Sender: FDA-Public Use
  Company Number: BR-US-EMD SERONO, INC.-7010716

PATIENT
  Sex: Female

DRUGS (7)
  1. REBIF [Suspect]
     Indication: RELAPSING-REMITTING MULTIPLE SCLEROSIS
     Route: 058
     Dates: start: 20020101
  2. PURAN T4 (LEVOTHYROXINE) [Concomitant]
  3. ASPIRIN [Concomitant]
  4. VASOGARD (CILOSTASOL) [Concomitant]
  5. OMEPRAZOLE [Concomitant]
  6. METFORMIN [Concomitant]
  7. RETEMIC [Concomitant]

REACTIONS (6)
  - CELLULITIS [None]
  - ERYSIPELAS [None]
  - HERNIA [None]
  - INCOHERENT [None]
  - MEMORY IMPAIRMENT [None]
  - POLLAKIURIA [None]
